FAERS Safety Report 18898019 (Version 1)
Quarter: 2021Q1

REPORT INFORMATION
  Report Type: Report from Study
  Country: US (occurrence: US)
  Receive Date: 20210216
  Receipt Date: 20210216
  Transmission Date: 20210420
  Serious: Yes (Other)
  Sender: FDA-Public Use
  Company Number: US-TAKEDA-US202027031

PATIENT
  Sex: Male
  Weight: 90.7 kg

DRUGS (50)
  1. GAMMAGARD S/D [Suspect]
     Active Substance: HUMAN IMMUNOGLOBULIN G
     Indication: IMMUNODEFICIENCY COMMON VARIABLE
     Dosage: 40 GRAM, 1/WEEK
     Route: 042
     Dates: start: 20180113
  2. EPINEPHRINE. [Concomitant]
     Active Substance: EPINEPHRINE
  3. OXYCODONE [Concomitant]
     Active Substance: OXYCODONE
  4. SYNTHROID [Concomitant]
     Active Substance: LEVOTHYROXINE SODIUM
  5. DIOVAN [Concomitant]
     Active Substance: VALSARTAN
  6. MORPHIN [MORPHINE HYDROCHLORIDE] [Concomitant]
     Active Substance: MORPHINE HYDROCHLORIDE
  7. DIPHENHYDRAMINE. [Concomitant]
     Active Substance: DIPHENHYDRAMINE
  8. HEPARIN [Concomitant]
     Active Substance: HEPARIN SODIUM
  9. RELPAX [Concomitant]
     Active Substance: ELETRIPTAN HYDROBROMIDE
  10. CARVEDILOL. [Concomitant]
     Active Substance: CARVEDILOL
  11. OXYBUTYNIN. [Concomitant]
     Active Substance: OXYBUTYNIN CHLORIDE
  12. PLAVIX [Concomitant]
     Active Substance: CLOPIDOGREL BISULFATE
  13. CLONIDINE. [Concomitant]
     Active Substance: CLONIDINE
  14. PROMETHAZINE [Concomitant]
     Active Substance: PROMETHAZINE HYDROCHLORIDE
  15. LASIX [Concomitant]
     Active Substance: FUROSEMIDE
  16. FLOMAX [MORNIFLUMATE] [Concomitant]
     Active Substance: MORNIFLUMATE
  17. ZOLPIDEM [Concomitant]
     Active Substance: ZOLPIDEM TARTRATE
  18. GABAPENTIN. [Concomitant]
     Active Substance: GABAPENTIN
  19. LEVOXYL [Concomitant]
     Active Substance: LEVOTHYROXINE SODIUM
  20. BACLOFEN. [Concomitant]
     Active Substance: BACLOFEN
  21. HUMAN NORMAL IMMUNOGLOBULIN; LIQUID [Suspect]
     Active Substance: HUMAN IMMUNOGLOBULIN G
     Indication: PRIMARY IMMUNODEFICIENCY SYNDROME
     Dosage: UNK, UNKNOWN
     Route: 065
  22. LIDOCAINE. [Concomitant]
     Active Substance: LIDOCAINE
  23. XOPENEX [Concomitant]
     Active Substance: LEVALBUTEROL HYDROCHLORIDE
  24. SPIRIVA [Concomitant]
     Active Substance: TIOTROPIUM BROMIDE MONOHYDRATE
  25. HYDROXYCHLOROQUINE [Concomitant]
     Active Substance: HYDROXYCHLOROQUINE
  26. CLOTRIMAZOLE 7 [Concomitant]
     Active Substance: CLOTRIMAZOLE
  27. TESTOSTERONE. [Concomitant]
     Active Substance: TESTOSTERONE
  28. MS CONTIN [Concomitant]
     Active Substance: MORPHINE SULFATE
  29. FLONASE [Concomitant]
     Active Substance: FLUTICASONE PROPIONATE
  30. PEPCID [Concomitant]
     Active Substance: FAMOTIDINE
  31. CHLORTHALIDONE. [Concomitant]
     Active Substance: CHLORTHALIDONE
  32. GAMMAGARD S/D [Suspect]
     Active Substance: HUMAN IMMUNOGLOBULIN G
     Indication: IMMUNODEFICIENCY COMMON VARIABLE
     Dosage: 40 GRAM, 1/WEEK
     Route: 042
     Dates: start: 20180113
  33. SODIUM CHLORIDE. [Concomitant]
     Active Substance: SODIUM CHLORIDE
  34. DOCUSATE [Concomitant]
     Active Substance: DOCUSATE
  35. HYDROCORTISONE. [Concomitant]
     Active Substance: HYDROCORTISONE
  36. MAGNESIUM [Concomitant]
     Active Substance: MAGNESIUM
  37. ATORVASTATIN [Concomitant]
     Active Substance: ATORVASTATIN
  38. CARDURA [Concomitant]
     Active Substance: DOXAZOSIN MESYLATE
  39. NALOXONE [Concomitant]
     Active Substance: NALOXONE
  40. LIOTHYRONINE [Concomitant]
     Active Substance: LIOTHYRONINE
  41. ASPIRIN (E.C.) [Concomitant]
     Active Substance: ASPIRIN
  42. SINGULAIR [Concomitant]
     Active Substance: MONTELUKAST SODIUM
  43. MAXALT [Concomitant]
     Active Substance: RIZATRIPTAN BENZOATE
  44. LIPITOR [Concomitant]
     Active Substance: ATORVASTATIN CALCIUM
  45. SENNA?S [DOCUSATE SODIUM;SENNA ALEXANDRINA] [Concomitant]
  46. ZOFRAN [Concomitant]
     Active Substance: ONDANSETRON HYDROCHLORIDE
  47. MIRALAX [Concomitant]
     Active Substance: POLYETHYLENE GLYCOL 3350
  48. NORVASC [Concomitant]
     Active Substance: AMLODIPINE BESYLATE
  49. OMEPRAZOLE. [Concomitant]
     Active Substance: OMEPRAZOLE
  50. POTASSIUM [Concomitant]
     Active Substance: POTASSIUM

REACTIONS (3)
  - Hip arthroplasty [Unknown]
  - Arthralgia [Unknown]
  - Back pain [Unknown]
